FAERS Safety Report 6167967-5 (Version None)
Quarter: 2009Q2

REPORT INFORMATION
  Report Type: 
  Country: None (occurrence: None)
  Receive Date: 20090427
  Receipt Date: 20090417
  Transmission Date: 20091009
  Serious: Yes (Hospitalization, Other)
  Sender: FDA-Public Use
  Company Number: BE-BAYER-200833076GPV

PATIENT
  Age: 57 Year
  Sex: Male
  Weight: 90 kg

DRUGS (9)
  1. MABCAMPATH [Suspect]
     Indication: CHRONIC LYMPHOCYTIC LEUKAEMIA
     Route: 065
     Dates: start: 20081020
  2. FLUDARA [Suspect]
     Indication: CHRONIC LYMPHOCYTIC LEUKAEMIA
     Dosage: 4 CYCLES
     Dates: start: 20070411, end: 20070704
  3. FLUDARA [Suspect]
     Dosage: 6 CYCLES
     Dates: start: 20040419
  4. SINTROM [Concomitant]
  5. ZOVIRAX [Concomitant]
     Dosage: TOTAL DAILY DOSE: 1600 MG
  6. BACTRIM [Concomitant]
  7. CELEBREX [Concomitant]
  8. FLAGYL [Concomitant]
  9. ZANTAC [Concomitant]

REACTIONS (7)
  - ABDOMINAL PAIN UPPER [None]
  - CHRONIC LYMPHOCYTIC LEUKAEMIA TRANSFORMATION [None]
  - METASTASES TO LIVER [None]
  - NEUTROPENIA [None]
  - PAIN [None]
  - PANCYTOPENIA [None]
  - PYREXIA [None]
